FAERS Safety Report 6596014-6 (Version None)
Quarter: 2010Q1

REPORT INFORMATION
  Report Type: 
  Country: None (occurrence: None)
  Receive Date: 20100223
  Receipt Date: 20100217
  Transmission Date: 20100710
  Serious: Yes (Hospitalization)
  Sender: FDA-Public Use
  Company Number: FR-WYE-G05585510

PATIENT
  Sex: Male
  Weight: 10.6 kg

DRUGS (4)
  1. ADVIL LIQUI-GELS [Suspect]
     Indication: PYREXIA
     Dosage: 1 DOSE/10 KG PER INTAKE
     Route: 048
     Dates: start: 20100121, end: 20100124
  2. ADVIL LIQUI-GELS [Suspect]
     Indication: RHINITIS
  3. CEFPODOXIME PROXETIL [Concomitant]
     Indication: RHINITIS
     Route: 048
     Dates: start: 20100123, end: 20100125
  4. DOLIPRANE [Concomitant]
     Indication: PYREXIA
     Route: 048
     Dates: start: 20100121, end: 20100125

REACTIONS (3)
  - EYE ABSCESS [None]
  - ORBITAL INFECTION [None]
  - OSTEITIS [None]
